FAERS Safety Report 16947608 (Version 2)
Quarter: 2020Q1

REPORT INFORMATION
  Report Type: Spontaneous
  Country: US (occurrence: US)
  Receive Date: 20191022
  Receipt Date: 20200113
  Transmission Date: 20200409
  Serious: No
  Sender: FDA-Public Use
  Company Number: US-VIFOR (INTERNATIONAL) INC.-VIT-2019-10457

PATIENT
  Age: 25 Year
  Sex: Male
  Weight: 86 kg

DRUGS (4)
  1. MIRCERA [Suspect]
     Active Substance: METHOXY POLYETHYLENE GLYCOL-EPOETIN BETA
     Route: 040
     Dates: start: 20190911, end: 20190911
  2. MIRCERA [Suspect]
     Active Substance: METHOXY POLYETHYLENE GLYCOL-EPOETIN BETA
     Indication: NEPHROGENIC ANAEMIA
     Route: 040
     Dates: start: 20190707
  3. HECTOROL [Suspect]
     Active Substance: DOXERCALCIFEROL
     Dosage: 28TH DOSE
     Route: 040
     Dates: start: 20190911
  4. HECTOROL [Suspect]
     Active Substance: DOXERCALCIFEROL
     Indication: PRODUCT USED FOR UNKNOWN INDICATION
     Dosage: EVERY TREATMENT
     Route: 040
     Dates: start: 20190710

REACTIONS (5)
  - Dizziness [Recovered/Resolved]
  - Flushing [Recovered/Resolved]
  - Drug hypersensitivity [Recovered/Resolved]
  - Dyspnoea [Recovered/Resolved]
  - Nausea [Recovered/Resolved]

NARRATIVE: CASE EVENT DATE: 20190911
